FAERS Safety Report 8821327 (Version 1)
Quarter: 2012Q4

REPORT INFORMATION
  Report Type: 
  Country: PL (occurrence: PL)
  Receive Date: 20121002
  Receipt Date: 20121002
  Transmission Date: 20130627
  Serious: Yes (Death)
  Sender: FDA-Public Use
  Company Number: PL-CELGENEUS-129-50794-12030005

PATIENT
  Sex: Male

DRUGS (2)
  1. VIDAZA [Suspect]
     Indication: MDS
     Route: 065
     Dates: start: 2011
  2. VIDAZA [Suspect]
     Route: 065
     Dates: end: 201206

REACTIONS (3)
  - Death [Fatal]
  - Skin reaction [Unknown]
  - Infection [Unknown]
